FAERS Safety Report 8226293-0 (Version None)
Quarter: 2012Q1

REPORT INFORMATION
  Report Type: 
  Country: None (occurrence: None)
  Receive Date: 20120321
  Receipt Date: 20120314
  Transmission Date: 20120608
  Serious: Yes (Other)
  Sender: FDA-Public Use
  Company Number: FR-MERCK-1203USA02033

PATIENT
  Age: 54 Year
  Sex: Male

DRUGS (2)
  1. PREVISCAN [Suspect]
     Indication: AORTIC VALVE REPLACEMENT
     Route: 048
     Dates: start: 19990101
  2. COZAAR [Suspect]
     Indication: HYPERTENSION
     Route: 065
     Dates: start: 19990101, end: 20120123

REACTIONS (2)
  - CELL DEATH [None]
  - CHOLESTASIS [None]
